FAERS Safety Report 5215524-7 (Version None)
Quarter: 2007Q1

REPORT INFORMATION
  Report Type: 
  Country: None (occurrence: None)
  Receive Date: 20070123
  Receipt Date: 20070117
  Transmission Date: 20070707
  Serious: Yes (Other)
  Sender: FDA-Public Use
  Company Number: DE-BRACCO-BRO-009569

PATIENT
  Sex: Female

DRUGS (1)
  1. SOLUTRAST [Suspect]
     Route: 042
     Dates: start: 20020331, end: 20020331

REACTIONS (1)
  - HYPERTHYROIDISM [None]
